FAERS Safety Report 11235165 (Version 2)
Quarter: 2015Q3

REPORT INFORMATION
  Report Type: Report from Study
  Country: PE (occurrence: PE)
  Receive Date: 20150702
  Receipt Date: 20150709
  Transmission Date: 20151125
  Serious: Yes (Other)
  Sender: FDA-Public Use
  Company Number: PE-GILEAD-2015-0161248

PATIENT
  Age: 41 Year
  Sex: Male
  Weight: 69.5 kg

DRUGS (4)
  1. EFAVIRENZ [Suspect]
     Active Substance: EFAVIRENZ
     Indication: HIV INFECTION
     Dosage: 600 MG, QD
     Route: 048
     Dates: start: 20150227, end: 20150521
  2. ETOPOSIDE. [Suspect]
     Active Substance: ETOPOSIDE
     Indication: HIV INFECTION
     Dosage: 100 MG, QD
     Route: 048
     Dates: start: 20150227, end: 20150515
  3. GENOMMA LABS NIKZON [Concomitant]
     Dosage: UNK
     Dates: start: 20150515, end: 20150521
  4. EMTRICITABINE/TENOFOVIR DISOPROXIL FUMARATE [Suspect]
     Active Substance: EMTRICITABINE\TENOFOVIR DISOPROXIL
     Indication: HIV INFECTION
     Dosage: 500 MG, QD
     Route: 048
     Dates: start: 20150227, end: 20150521

REACTIONS (1)
  - Chronic hepatitis B [Recovering/Resolving]

NARRATIVE: CASE EVENT DATE: 20150522
